FAERS Safety Report 10228474 (Version 1)
Quarter: 2014Q2

REPORT INFORMATION
  Report Type: Report from Study
  Country: US (occurrence: US)
  Receive Date: 20140610
  Receipt Date: 20140610
  Transmission Date: 20141212
  Serious: Yes (Other)
  Sender: FDA-Public Use
  Company Number: US-ACTELION-A-US2014-099862

PATIENT
  Age: 63 Year
  Sex: Female

DRUGS (2)
  1. MACITENTAN [Suspect]
     Indication: COR PULMONALE CHRONIC
     Dosage: 10 MG, UNK
     Route: 048
  2. WARFARIN [Concomitant]

REACTIONS (4)
  - Dialysis [Unknown]
  - Urinary tract infection [Unknown]
  - Hypotension [Unknown]
  - Nasal congestion [Unknown]
